FAERS Safety Report 8924698 (Version 2)
Quarter: 2012Q4

REPORT INFORMATION
  Report Type: Spontaneous
  Country: US (occurrence: None)
  Receive Date: 20121116
  Receipt Date: 20121126
  Transmission Date: 20130627
  Serious: Yes (Hospitalization, Other)
  Sender: FDA-Public Use
  Company Number: 2012P1063566

PATIENT
  Age: 53 Year
  Sex: Female
  Weight: 92.99 kg

DRUGS (8)
  1. MEPERIDINE HYDROCHLORIDE [Suspect]
     Indication: BACK PAIN
     Route: 048
     Dates: start: 20121024, end: 20121029
  2. MEPERIDINE HYDROCHLORIDE [Suspect]
     Indication: BACK PAIN
     Route: 048
     Dates: start: 20121101, end: 20121101
  3. PLAVIX [Concomitant]
  4. OMEPRAZOLE [Concomitant]
  5. ASPIRIN [Concomitant]
  6. TIZANIDINE [Concomitant]
  7. TRAZODONE [Concomitant]
  8. TOPIRAMATE [Concomitant]

REACTIONS (14)
  - Inflammatory pain [None]
  - Diarrhoea [None]
  - Fibromyalgia [None]
  - Malaise [None]
  - Dehydration [None]
  - Chest pain [None]
  - Presyncope [None]
  - Renal failure acute [None]
  - Inflammation [None]
  - Pain [None]
  - Hypokalaemia [None]
  - Weight decreased [None]
  - Local swelling [None]
  - Toxicity to various agents [None]
